FAERS Safety Report 10697744 (Version 1)
Quarter: 2015Q1

REPORT INFORMATION
  Report Type: Spontaneous
  Country: FR (occurrence: FR)
  Receive Date: 20150108
  Receipt Date: 20150108
  Transmission Date: 20150721
  Serious: Yes (Hospitalization)
  Sender: FDA-Public Use
  Company Number: FR-PFIZER INC-2015002402

PATIENT
  Age: 79 Year
  Sex: Male
  Weight: 90 kg

DRUGS (6)
  1. SUTENT [Suspect]
     Active Substance: SUNITINIB MALATE
     Indication: RENAL NEOPLASM
     Dosage: 50 MG, DAILY, CYCLE 2
     Route: 048
     Dates: start: 20140523
  2. LASILIX SPECIAL [Concomitant]
     Active Substance: FUROSEMIDE
     Dosage: 500 MG, 1X/DAY
     Route: 048
  3. AMLODIPINE [Concomitant]
     Active Substance: AMLODIPINE BESYLATE
     Dosage: 5 MG, 1X/DAY
     Route: 048
  4. COVERSYL [Concomitant]
     Active Substance: PERINDOPRIL
     Dosage: 2.5 MG, 1X/DAY
     Route: 048
  5. MOVICOL [Concomitant]
     Active Substance: POLYETHYLENE GLYCOL 3350\POTASSIUM CHLORIDE\SODIUM BICARBONATE\SODIUM CHLORIDE
     Dosage: 1 DF, 1X/DAY
     Route: 048
  6. DESLORATADINE. [Concomitant]
     Active Substance: DESLORATADINE
     Dosage: 5 MG, 1X/DAY
     Route: 048

REACTIONS (3)
  - Acquired macroglossia [Recovered/Resolved]
  - Hypersensitivity [Recovered/Resolved]
  - Face oedema [Recovered/Resolved]

NARRATIVE: CASE EVENT DATE: 20140530
